FAERS Safety Report 16373273 (Version 1)
Quarter: 2019Q2

REPORT INFORMATION
  Report Type: Spontaneous
  Country: FR (occurrence: FR)
  Receive Date: 20190530
  Receipt Date: 20190530
  Transmission Date: 20190711
  Serious: Yes (Death)
  Sender: FDA-Public Use
  Company Number: PHHY2019FR123833

PATIENT
  Sex: Male

DRUGS (2)
  1. ZYTIGA [Suspect]
     Active Substance: ABIRATERONE ACETATE
     Indication: PROSTATE CANCER METASTATIC
     Dosage: 1000 MG, QD, FOUR TABLETS OF 250MG EACH IN A 28 DAY TREATMENT CYCLE WAS ADMINISTERED AT LEAST 1H BEF
     Route: 048
  2. PREDNISONE. [Suspect]
     Active Substance: PREDNISONE
     Indication: PROSTATE CANCER METASTATIC
     Dosage: 5 MG, QD LOW DOSE IN A 28 DAY TREATMENT CYCLE WAS ADMINISTERED AT LEAST 1H BEFORE OR 2H AFTER A MEAL
     Route: 048

REACTIONS (1)
  - Gastric ulcer perforation [Fatal]
